FAERS Safety Report 7187658-1 (Version None)
Quarter: 2010Q4

REPORT INFORMATION
  Report Type: 
  Country: None (occurrence: None)
  Receive Date: 20101222
  Receipt Date: 20100702
  Transmission Date: 20110411
  Serious: Yes (Other)
  Sender: FDA-Public Use
  Company Number: US-AMGEN-KDL421996

PATIENT

DRUGS (16)
  1. ENBREL [Suspect]
     Indication: PRODUCT USED FOR UNKNOWN INDICATION
     Dosage: 50 MG, UNK
  2. ALPRAZOLAM [Concomitant]
     Dosage: .5 MG, UNK
  3. SERTRALINE HYDROCHLORIDE [Concomitant]
     Dosage: 25 MG, UNK
  4. AMLODIPINE BESYLATE [Concomitant]
     Dosage: 2.5 MG, UNK
  5. GABAPENTIN [Concomitant]
     Dosage: 100 MG, UNK
  6. PREGABALIN [Concomitant]
     Dosage: 50 MG, UNK
  7. ACYCLOVIR [Concomitant]
     Dosage: 400 MG, UNK
  8. MORPHINE SULFATE [Concomitant]
     Dosage: 30 MG, UNK
  9. FLUTICASONE/SALMETEROL [Concomitant]
  10. METOPROLOL [Concomitant]
     Dosage: 25 MG, UNK
  11. FENTANYL-100 [Concomitant]
     Dosage: 12 A?G, UNK
  12. NORTRIPTYLINE HYDROCHLORIDE [Concomitant]
     Dosage: 10 MG, UNK
  13. RANITIDINE HYDROCHLORIDE [Concomitant]
     Dosage: UNK UNK, UNK
  14. CYANOCOBALAMIN [Concomitant]
     Dosage: 500 A?G, UNK
  15. KINERET [Concomitant]
     Dosage: UNK UNK, UNK
  16. ACETAMINOPHEN AND OXYCODONE HCL [Concomitant]
     Dosage: UNK UNK, UNK

REACTIONS (1)
  - MULTIPLE SCLEROSIS [None]
